FAERS Safety Report 5492210-X (Version None)
Quarter: 2007Q4

REPORT INFORMATION
  Report Type: 
  Country: None (occurrence: None)
  Receive Date: 20071015
  Receipt Date: 20070601
  Transmission Date: 20080405
  Serious: Yes (Disabling)
  Sender: FDA-Public Use
  Company Number: HQWYE476004JUN07

PATIENT
  Age: 41 Year
  Sex: Female

DRUGS (1)
  1. RAPAMUNE [Suspect]
     Dosage: 4 MG 1X PER 1 DAY, ORAL
     Route: 048

REACTIONS (1)
  - STOMATITIS [None]
